FAERS Safety Report 22158600 (Version 2)
Quarter: 2023Q2

REPORT INFORMATION
  Report Type: Spontaneous
  Country: US (occurrence: US)
  Receive Date: 20230331
  Receipt Date: 20230421
  Transmission Date: 20230722
  Serious: Yes (Other)
  Sender: FDA-Public Use
  Company Number: US-CHEPLA-2023004020

PATIENT
  Sex: Female
  Weight: 75 kg

DRUGS (37)
  1. HYDROXYUREA [Suspect]
     Active Substance: HYDROXYUREA
     Indication: Product used for unknown indication
     Dates: start: 2020, end: 2021
  2. HYDROXYUREA [Suspect]
     Active Substance: HYDROXYUREA
     Indication: Product used for unknown indication
     Dates: start: 202204
  3. HYDROXYUREA [Suspect]
     Active Substance: HYDROXYUREA
     Indication: Product used for unknown indication
     Dates: start: 2023, end: 2023
  4. PEGASYS [Suspect]
     Active Substance: PEGINTERFERON ALFA-2A
     Indication: Neoplasm malignant
     Dates: start: 201908, end: 201908
  5. PEGASYS [Suspect]
     Active Substance: PEGINTERFERON ALFA-2A
     Indication: Polycythaemia
     Dates: start: 201908, end: 201908
  6. PEGASYS [Suspect]
     Active Substance: PEGINTERFERON ALFA-2A
     Indication: Neoplasm malignant
     Dosage: 2X/MONTH
     Dates: start: 202006, end: 2023
  7. PEGASYS [Suspect]
     Active Substance: PEGINTERFERON ALFA-2A
     Indication: Polycythaemia
     Dosage: 2X/MONTH
     Dates: start: 202006, end: 2023
  8. PEGASYS [Suspect]
     Active Substance: PEGINTERFERON ALFA-2A
     Indication: Neoplasm malignant
     Dosage: 2X/MONTH
     Dates: start: 20230405
  9. PEGASYS [Suspect]
     Active Substance: PEGINTERFERON ALFA-2A
     Indication: Polycythaemia
     Dosage: 2X/MONTH
     Dates: start: 20230405
  10. PEGASYS [Suspect]
     Active Substance: PEGINTERFERON ALFA-2A
     Indication: Neoplasm malignant
     Dosage: 2X/MONTH
     Dates: end: 202004
  11. PEGASYS [Suspect]
     Active Substance: PEGINTERFERON ALFA-2A
     Indication: Polycythaemia
     Dosage: 2X/MONTH
     Dates: end: 202004
  12. JAKAFI [Suspect]
     Active Substance: RUXOLITINIB
     Indication: Polycythaemia
     Dates: start: 201908, end: 202002
  13. JAKAFI [Suspect]
     Active Substance: RUXOLITINIB
     Indication: Neoplasm malignant
     Dates: start: 201908, end: 202002
  14. JAKAFI [Suspect]
     Active Substance: RUXOLITINIB
     Indication: Polycythaemia
     Dates: start: 202205, end: 202208
  15. JAKAFI [Suspect]
     Active Substance: RUXOLITINIB
     Indication: Neoplasm malignant
     Dates: start: 202205, end: 202208
  16. JAKAFI [Suspect]
     Active Substance: RUXOLITINIB
     Indication: Polycythaemia
     Dates: start: 2023
  17. JAKAFI [Suspect]
     Active Substance: RUXOLITINIB
     Indication: Neoplasm malignant
     Dates: start: 2023
  18. ALLOPURINOL [Concomitant]
     Active Substance: ALLOPURINOL
  19. ATORVASTATIN [Concomitant]
     Active Substance: ATORVASTATIN
  20. CARVEDILOL [Concomitant]
     Active Substance: CARVEDILOL
  21. IRBESARTAN [Concomitant]
     Active Substance: IRBESARTAN
  22. LEVOTHYROXINE [Concomitant]
     Active Substance: LEVOTHYROXINE
  23. PANTOPRAZOLE [Concomitant]
     Active Substance: PANTOPRAZOLE
  24. SERTRALINE [Concomitant]
     Active Substance: SERTRALINE HYDROCHLORIDE
  25. TAMSULOSIN [Concomitant]
     Active Substance: TAMSULOSIN
  26. VALACYCLOVIR [Concomitant]
     Active Substance: VALACYCLOVIR HYDROCHLORIDE
  27. ALPRAZOLAM [Concomitant]
     Active Substance: ALPRAZOLAM
     Dosage: AS NEEDED
  28. CLONIDINE HYDROCHLORIDE [Concomitant]
     Active Substance: CLONIDINE HYDROCHLORIDE
  29. VITAMIN B1 [Concomitant]
     Active Substance: THIAMINE HYDROCHLORIDE
  30. VITAMIN B6 [Concomitant]
     Active Substance: PYRIDOXINE HYDROCHLORIDE
  31. VITAMIN C [Concomitant]
     Active Substance: ASCORBIC ACID
  32. VITAMIN D3 [Concomitant]
     Active Substance: CHOLECALCIFEROL
  33. COENZYME Q10 [Concomitant]
     Active Substance: DIETARY SUPPLEMENT\UBIDECARENONE
  34. MIRALAX [Concomitant]
     Active Substance: POLYETHYLENE GLYCOL 3350
  35. Claritiin [Concomitant]
  36. XIIDRA [Concomitant]
     Active Substance: LIFITEGRAST
  37. ASPIRIN [Concomitant]
     Active Substance: ASPIRIN

REACTIONS (8)
  - Bone pain [Recovered/Resolved]
  - Bone pain [Unknown]
  - Rash [Unknown]
  - Pruritus [Unknown]
  - Burning sensation [Unknown]
  - Neuropathy peripheral [Unknown]
  - Malaise [Not Recovered/Not Resolved]
  - Pruritus [Unknown]

NARRATIVE: CASE EVENT DATE: 20210101
